FAERS Safety Report 14818748 (Version 1)
Quarter: 2018Q2

REPORT INFORMATION
  Report Type: Report from Study
  Country: US (occurrence: US)
  Receive Date: 20180427
  Receipt Date: 20180427
  Transmission Date: 20180711
  Serious: Yes (Hospitalization)
  Sender: FDA-Public Use
  Company Number: US-B.I. PHARMACEUTICALS,INC./RIDGEFIELD-2018-BI-019601

PATIENT
  Sex: Female

DRUGS (1)
  1. SPIRIVA [Suspect]
     Active Substance: TIOTROPIUM BROMIDE MONOHYDRATE
     Indication: PRODUCT USED FOR UNKNOWN INDICATION
     Dosage: STRENGTH: 3.124 UG/1; DAILY DOSE: UNKNOWN?1 CARTRIDGE IN 1 CARTON (0597-0100-61) } 60 SPRAY, METERE
     Route: 065

REACTIONS (5)
  - Dry mouth [Unknown]
  - Pharyngeal oedema [Unknown]
  - Cardiac disorder [Unknown]
  - Oedema [Unknown]
  - Throat irritation [Unknown]
